FAERS Safety Report 5321631-0 (Version None)
Quarter: 2007Q1

REPORT INFORMATION
  Report Type: 
  Country: None (occurrence: None)
  Receive Date: 20070220
  Receipt Date: 20061221
  Transmission Date: 20070707
  Serious: No
  Sender: FDA-Public Use
  Company Number: TPA2007A00024

PATIENT
  Age: 72 Year
  Sex: Male
  Weight: 89.3586 kg

DRUGS (5)
  1. ROZEREM [Suspect]
     Indication: INSOMNIA
     Dosage: 8 MG, HS, PER ORAL
     Route: 048
     Dates: start: 20061220
  2. COREG [Concomitant]
  3. NASPAN (NICOTINIC ACID) [Concomitant]
  4. ZOCOR [Concomitant]
  5. ASPIRIN [Concomitant]

REACTIONS (2)
  - INITIAL INSOMNIA [None]
  - STOMACH DISCOMFORT [None]
